FAERS Safety Report 4290443-1 (Version None)
Quarter: 2004Q1

REPORT INFORMATION
  Report Type: 
  Country: None (occurrence: None)
  Receive Date: 20040209
  Receipt Date: 20040128
  Transmission Date: 20041129
  Serious: Yes (Hospitalization, Other)
  Sender: FDA-Public Use
  Company Number: 2004-01-2073

PATIENT
  Age: 37 Year
  Sex: Female

DRUGS (3)
  1. INTRON A [Suspect]
     Indication: MALIGNANT MELANOMA
     Dosage: 10MIU TIW SUBCUTANEOUS
     Route: 058
     Dates: start: 20031006
  2. TEMOZOLOMIDE CAPSULES [Suspect]
     Indication: MALIGNANT MELANOMA
     Dosage: 320MG DAY 1-5 ORAL
     Route: 048
     Dates: start: 20031103
  3. ZOFRAN [Concomitant]

REACTIONS (6)
  - ASTHENIA [None]
  - EPISTAXIS [None]
  - FATIGUE [None]
  - HAEMATOMA [None]
  - PANCYTOPENIA [None]
  - VERTIGO [None]
